FAERS Safety Report 6395663-8 (Version None)
Quarter: 2009Q4

REPORT INFORMATION
  Report Type: 
  Country: None (occurrence: None)
  Receive Date: 20091009
  Receipt Date: 20091006
  Transmission Date: 20100525
  Serious: Yes (Other)
  Sender: FDA-Public Use
  Company Number: NL-AVENTIS-200915403EU

PATIENT
  Age: 28 Year
  Sex: Male

DRUGS (6)
  1. ENOXAPARIN SODIUM [Suspect]
     Indication: DEEP VEIN THROMBOSIS
     Route: 058
     Dates: start: 20071218, end: 20080104
  2. ACENOCOUMAROL [Suspect]
     Indication: DEEP VEIN THROMBOSIS
     Dosage: DOSE: UNK
     Route: 048
     Dates: start: 20071218, end: 20080318
  3. ACETAMINOPHEN [Concomitant]
     Route: 048
     Dates: start: 20071210, end: 20071228
  4. DICLOFENAC [Concomitant]
     Route: 048
     Dates: start: 20071210, end: 20071218
  5. OMEPRAZOLE [Concomitant]
     Route: 048
     Dates: start: 20071210, end: 20071218
  6. ZALDIAR [Concomitant]
     Dosage: DOSE: UNK
     Route: 048
     Dates: start: 20071218, end: 20071228

REACTIONS (1)
  - HEPATIC ENZYME INCREASED [None]
